FAERS Safety Report 18504453 (Version 1)
Quarter: 2020Q4

REPORT INFORMATION
  Report Type: Spontaneous
  Country: DE (occurrence: DE)
  Receive Date: 20201113
  Receipt Date: 20201113
  Transmission Date: 20210114
  Serious: Yes (Hospitalization, Other)
  Sender: FDA-Public Use
  Company Number: DE-VISTAPHARM, INC.-VER202011-001962

PATIENT
  Age: 7 Year
  Sex: Male

DRUGS (1)
  1. METHADONE [Suspect]
     Active Substance: METHADONE HYDROCHLORIDE
     Indication: ATTENTION DEFICIT HYPERACTIVITY DISORDER
     Dosage: 15-20 ML (MAXIMUM 54 MG)
     Route: 048

REACTIONS (10)
  - Overdose [Unknown]
  - Respiratory acidosis [Recovered/Resolved]
  - Miosis [Recovered/Resolved]
  - Fatigue [Unknown]
  - Poisoning [Recovered/Resolved]
  - Hypotension [Recovered/Resolved]
  - Product preparation error [Unknown]
  - Loss of consciousness [Recovered/Resolved]
  - Heart rate increased [Recovered/Resolved]
  - Respiratory depression [Recovered/Resolved]
